FAERS Safety Report 16475734 (Version 1)
Quarter: 2019Q2

REPORT INFORMATION
  Report Type: Report from Study
  Country: GB (occurrence: GB)
  Receive Date: 20190625
  Receipt Date: 20190625
  Transmission Date: 20190711
  Serious: Yes (Other)
  Sender: FDA-Public Use
  Company Number: PHHY2019GB145230

PATIENT
  Sex: Female

DRUGS (1)
  1. HYRIMOZ [Suspect]
     Active Substance: ADALIMUMAB-ADAZ
     Indication: CROHN^S DISEASE
     Dosage: 160 MG, WEEK 0, 80 MG WEEK 2, 40 MG EOW THEREAFTER
     Route: 058
     Dates: start: 20190524

REACTIONS (4)
  - Anxiety [Unknown]
  - Mental impairment [Unknown]
  - Nausea [Unknown]
  - Menstruation irregular [Unknown]
